FAERS Safety Report 25438353 (Version 2)
Quarter: 2025Q2

REPORT INFORMATION
  Report Type: Report from Study
  Country: CA (occurrence: CA)
  Receive Date: 20250616
  Receipt Date: 20250623
  Transmission Date: 20250717
  Serious: Yes (Hospitalization)
  Sender: SAMSUNG BIOEPIS
  Company Number: CA-SAMSUNG BIOEPIS-SB-2025-14683

PATIENT
  Age: 72 Year
  Sex: Female

DRUGS (7)
  1. ETANERCEPT [Suspect]
     Active Substance: ETANERCEPT
     Indication: Psoriasis
     Dates: start: 20230114
  2. ETANERCEPT [Suspect]
     Active Substance: ETANERCEPT
     Dates: start: 20230114
  3. ETANERCEPT [Suspect]
     Active Substance: ETANERCEPT
     Dates: start: 20250617
  4. BETADERM [Concomitant]
     Active Substance: BETAMETHASONE VALERATE
     Indication: Product used for unknown indication
  5. LASIX [Concomitant]
     Active Substance: FUROSEMIDE
     Indication: Product used for unknown indication
  6. NADOLOL [Concomitant]
     Active Substance: NADOLOL
     Indication: Product used for unknown indication
  7. XARELTO [Concomitant]
     Active Substance: RIVAROXABAN
     Indication: Product used for unknown indication

REACTIONS (6)
  - Endocarditis [Unknown]
  - Rash pruritic [Unknown]
  - Skin exfoliation [Unknown]
  - Oral mucosal eruption [Unknown]
  - Rash [Unknown]
  - Erythema [Unknown]
